FAERS Safety Report 8978634 (Version 1)
Quarter: 2012Q4

REPORT INFORMATION
  Report Type: Spontaneous
  Country: US (occurrence: None)
  Receive Date: 20121217
  Receipt Date: 20121217
  Transmission Date: 20130627
  Serious: Yes (Other)
  Sender: FDA-Public Use
  Company Number: None

PATIENT
  Age: 61 Year
  Sex: Female
  Weight: 68.04 kg

DRUGS (1)
  1. NEUPRO [Suspect]
     Indication: RESTLESS LEG SYNDROME
     Dosage: transdermal patch every 24 hours
     Route: 062
     Dates: start: 20120826, end: 20121126

REACTIONS (10)
  - Blood pressure decreased [None]
  - Dizziness [None]
  - Presyncope [None]
  - Application site rash [None]
  - Rash erythematous [None]
  - Rash pruritic [None]
  - Restless legs syndrome [None]
  - Disease recurrence [None]
  - Pain [None]
  - Therapeutic response unexpected [None]
